FAERS Safety Report 20552800 (Version 14)
Quarter: 2023Q2

REPORT INFORMATION
  Report Type: Spontaneous
  Country: US (occurrence: US)
  Receive Date: 20220304
  Receipt Date: 20230518
  Transmission Date: 20230722
  Serious: No
  Sender: FDA-Public Use
  Company Number: US-GLAXOSMITHKLINE-US2022AMR039102

PATIENT
  Age: 58 Year
  Sex: Female

DRUGS (4)
  1. ZEJULA [Suspect]
     Active Substance: NIRAPARIB
     Indication: Ovarian cancer
     Dosage: 200 MG
     Route: 048
     Dates: start: 20220223, end: 202203
  2. ZEJULA [Suspect]
     Active Substance: NIRAPARIB
     Dosage: 100 MG, QD
     Route: 048
     Dates: start: 20220414, end: 20220627
  3. ZEJULA [Suspect]
     Active Substance: NIRAPARIB
     Dosage: 100 MG, QD
  4. ZEJULA [Suspect]
     Active Substance: NIRAPARIB
     Dosage: 100 MG, (ONE CAPSULE BY MOUTH ONCE DAILY FOR 7 DAYS ON THEN 7 DAYS OFF)
     Route: 048
     Dates: start: 202208, end: 20230504

REACTIONS (11)
  - Weight increased [Not Recovered/Not Resolved]
  - White blood cell count decreased [Recovered/Resolved]
  - Increased appetite [Unknown]
  - Pruritus [Not Recovered/Not Resolved]
  - Renal function test abnormal [Recovered/Resolved]
  - Abdominal discomfort [Not Recovered/Not Resolved]
  - Abdominal pain upper [Not Recovered/Not Resolved]
  - Carbohydrate antigen 125 increased [Not Recovered/Not Resolved]
  - Product dose omission in error [Unknown]
  - Drug monitoring procedure incorrectly performed [Unknown]
  - Off label use [Unknown]

NARRATIVE: CASE EVENT DATE: 20220801
